FAERS Safety Report 12522754 (Version 1)
Quarter: 2016Q3

REPORT INFORMATION
  Report Type: Spontaneous
  Country: FR (occurrence: FR)
  Receive Date: 20160701
  Receipt Date: 20160701
  Transmission Date: 20161109
  Serious: Yes (Congenital Anomaly, Other)
  Sender: FDA-Public Use
  Company Number: FR-GLAXOSMITHKLINE-FR2016GSK093856

PATIENT
  Sex: Female

DRUGS (1)
  1. SALBUMOL [Suspect]
     Active Substance: ALBUTEROL SULFATE
     Indication: PREMATURE LABOUR
     Dosage: UNK
     Route: 064
     Dates: start: 2006, end: 2006

REACTIONS (4)
  - Abnormal behaviour [Not Recovered/Not Resolved]
  - Hypotonia [Not Recovered/Not Resolved]
  - Executive dysfunction [Not Recovered/Not Resolved]
  - Cerebellar atrophy [Not Recovered/Not Resolved]

NARRATIVE: CASE EVENT DATE: 2006
